FAERS Safety Report 5369861-6 (Version None)
Quarter: 2007Q2

REPORT INFORMATION
  Report Type: 
  Country: None (occurrence: None)
  Receive Date: 20070621
  Receipt Date: 20070612
  Transmission Date: 20071010
  Serious: Yes (Other)
  Sender: FDA-Public Use
  Company Number: DSM-2007-00276

PATIENT
  Age: 67 Year
  Sex: Female

DRUGS (3)
  1. OLMESARTAN (OLMESARTAN MEDOXOMIL) (10 MILLIGRAM, TABLET) (OLMESARTAN M [Suspect]
     Indication: HYPERTENSION
     Dosage: 10 MG (10 MG, 1 IN 1 D), ORAL
     Route: 048
     Dates: start: 20070131, end: 20070322
  2. BENDROFLUMETHIAZIDE (BENDROFLUMETHIAZIDE) (BENDROFLUMETHIAZIDE) [Concomitant]
  3. LEVOTHYROXINE (LEVOTHYROXINE) (LEVOTHYROXINE) [Concomitant]

REACTIONS (3)
  - APATHY [None]
  - ASTHENIA [None]
  - FEELING ABNORMAL [None]
